FAERS Safety Report 7487666-7 (Version None)
Quarter: 2011Q2

REPORT INFORMATION
  Report Type: 
  Country: None (occurrence: None)
  Receive Date: 20110511
  Receipt Date: 20110506
  Transmission Date: 20111010
  Serious: Yes (Death, Congenital Anomaly)
  Sender: FDA-Public Use
  Company Number: 11TR002277

PATIENT
  Age: 15 Day
  Sex: Female
  Weight: 3.2 kg

DRUGS (1)
  1. VALPROIC ACID [Suspect]
     Indication: PRODUCT USED FOR UNKNOWN INDICATION
     Dosage: 500 MG, QD, INTRA-UTERINE ; 250 UG, QD, INTRA-UTERINE
     Route: 015

REACTIONS (28)
  - FOETAL ANTICONVULSANT SYNDROME [None]
  - MATERNAL DRUGS AFFECTING FOETUS [None]
  - HIGH ARCHED PALATE [None]
  - NEONATAL RESPIRATORY FAILURE [None]
  - APGAR SCORE LOW [None]
  - EBSTEIN'S ANOMALY [None]
  - ARACHNODACTYLY [None]
  - LIMB MALFORMATION [None]
  - CARDIAC MALPOSITION [None]
  - HYDROCEPHALUS [None]
  - CAMPTODACTYLY CONGENITAL [None]
  - CRANIOSYNOSTOSIS [None]
  - RENAL HYPOPLASIA [None]
  - HYPOTONIA [None]
  - CONGENITAL NOSE MALFORMATION [None]
  - MICROPHTHALMOS [None]
  - PULMONARY VALVE STENOSIS [None]
  - CAESAREAN SECTION [None]
  - MICROGNATHIA [None]
  - CONGENITAL CYSTIC KIDNEY DISEASE [None]
  - PECTUS EXCAVATUM [None]
  - COARCTATION OF THE AORTA [None]
  - OPTIC NERVE HYPOPLASIA [None]
  - SKULL MALFORMATION [None]
  - ATRIAL SEPTAL DEFECT [None]
  - RIGHT VENTRICULAR HYPERTROPHY [None]
  - CARDIOMEGALY [None]
  - LOW SET EARS [None]
